FAERS Safety Report 9088135 (Version 3)
Quarter: 2014Q3

REPORT INFORMATION
  Report Type: Spontaneous
  Country: US (occurrence: US)
  Receive Date: 20130201
  Receipt Date: 20140718
  Transmission Date: 20150326
  Serious: Yes (Other)
  Sender: FDA-Public Use
  Company Number: US-TEVA-359250USA

PATIENT
  Age: 31 Year
  Sex: Female
  Weight: 54.48 kg

DRUGS (1)
  1. PARAGARD T380A [Suspect]
     Active Substance: COPPER
     Indication: CONTRACEPTION
     Route: 015
     Dates: start: 2009

REACTIONS (14)
  - Medical device complication [Not Recovered/Not Resolved]
  - Fungal infection [Unknown]
  - Pyrexia [Unknown]
  - Device dislocation [Not Recovered/Not Resolved]
  - Abdominal pain [Not Recovered/Not Resolved]
  - Pelvic pain [Unknown]
  - Vaginal discharge [Unknown]
  - Device breakage [Not Recovered/Not Resolved]
  - Metrorrhagia [Unknown]
  - Headache [Unknown]
  - Urinary tract infection [Unknown]
  - Menorrhagia [Unknown]
  - Migraine [Unknown]
  - Pruritus [Unknown]

NARRATIVE: CASE EVENT DATE: 201207
